FAERS Safety Report 18344768 (Version 1)
Quarter: 2020Q4

REPORT INFORMATION
  Report Type: Spontaneous
  Country: GR (occurrence: GR)
  Receive Date: 20201005
  Receipt Date: 20201005
  Transmission Date: 20210114
  Serious: Yes (Other)
  Sender: FDA-Public Use
  Company Number: GR-MYLANLABS-2020M1083537

PATIENT
  Age: 93 Year
  Sex: Female

DRUGS (1)
  1. SOTALOLO MYLAN GENERICS 80 MG COMPRESSE [Suspect]
     Active Substance: SOTALOL
     Indication: ARRHYTHMIA
     Dosage: HALF TAB 80 MG, BID
     Dates: start: 2018

REACTIONS (2)
  - Drug ineffective [Recovered/Resolved]
  - Heart rate increased [Recovered/Resolved]
